FAERS Safety Report 4640715-3 (Version None)
Quarter: 2005Q2

REPORT INFORMATION
  Report Type: 
  Country: None (occurrence: None)
  Receive Date: 20050419
  Receipt Date: 20050302
  Transmission Date: 20051028
  Serious: Yes (Life-Threatening)
  Sender: FDA-Public Use
  Company Number: 001#3#2005-00054

PATIENT
  Age: 60 Year
  Sex: Male

DRUGS (15)
  1. ALPROSTADIL [Suspect]
     Indication: VASCULAR BYPASS GRAFT
     Dosage: 60 MCG INTRAVENOUS (NOT OTHERWISE SPECIFIED)
     Route: 042
     Dates: start: 20041108, end: 20041109
  2. CLOPIDOGREL [CLOPIDOGREL SULFATE] [Concomitant]
  3. ACETYLSALICYLIC ACID SRT [Concomitant]
  4. HEPARIN [Concomitant]
  5. DYTIDE H (HYDROCHLOROTHIAZIDE, TRIAMTERENE) [Concomitant]
  6. CAPTOPRIL [Concomitant]
  7. METOPROLOL (METOPROLOL SUCCINATE) [Concomitant]
  8. MELPERON (MELPERONE HYDROCHLORIDE) [Concomitant]
  9. ATORVASTATIN (ATORVASTATIN CALCIUM) [Concomitant]
  10. TRAMADOL HCL [Concomitant]
  11. BUPRENORPHIN  (BUPRENORPHINE) [Concomitant]
  12. OXAZEPAM [Concomitant]
  13. INSULIN (INSULIN HUMAN INJECTION, ISOPHANE) [Concomitant]
  14. INSULIN (INSULIN HUMAN) [Concomitant]
  15. FUROSEMIDE [Concomitant]

REACTIONS (12)
  - CORONARY ARTERY DISEASE [None]
  - DILATATION VENTRICULAR [None]
  - EJECTION FRACTION DECREASED [None]
  - REOCCLUSION [None]
  - SHOCK [None]
  - SINUS TACHYCARDIA [None]
  - SOMNOLENCE [None]
  - SURGICAL PROCEDURE REPEATED [None]
  - TROPONIN INCREASED [None]
  - VASCULAR GRAFT COMPLICATION [None]
  - VENTRICULAR DYSFUNCTION [None]
  - VENTRICULAR TACHYCARDIA [None]
